FAERS Safety Report 5138747-4 (Version None)
Quarter: 2006Q4

REPORT INFORMATION
  Report Type: 
  Country: None (occurrence: None)
  Receive Date: 20061026
  Receipt Date: 20061026
  Transmission Date: 20070319
  Serious: Yes (Hospitalization)
  Sender: FDA-Public Use
  Company Number: None

PATIENT
  Age: 65 Year
  Sex: Male

DRUGS (6)
  1. RITUXAN [Suspect]
     Indication: MANTLE CELL LYMPHOMA
  2. THALIDOMIDE [Suspect]
     Indication: MANTLE CELL LYMPHOMA
  3. PREDNISONE TAB [Suspect]
  4. ETOPOSIDE [Suspect]
  5. PROCARBAZINE [Suspect]
  6. CYTOXAN [Suspect]

REACTIONS (1)
  - RETINITIS VIRAL [None]
